FAERS Safety Report 7547012-7 (Version None)
Quarter: 2011Q2

REPORT INFORMATION
  Report Type: 
  Country: None (occurrence: None)
  Receive Date: 20110614
  Receipt Date: 20110610
  Transmission Date: 20111010
  Serious: Yes (Life-Threatening)
  Sender: FDA-Public Use
  Company Number: PHHY2011GB51201

PATIENT
  Age: 82 Year
  Sex: Female
  Weight: 55 kg

DRUGS (10)
  1. ASPIRIN [Concomitant]
     Dosage: 75 MG, UNK
     Route: 048
  2. ERYTHROMYCIN [Concomitant]
     Dosage: 250 MG, QID
     Dates: start: 20101201, end: 20101201
  3. BISOPROLOL FUMARATE [Suspect]
     Indication: CARDIAC FAILURE
     Dosage: 1.25 MG, UNK
     Route: 048
     Dates: start: 20110228, end: 20110228
  4. FUROSEMIDE [Concomitant]
     Dosage: 40 MG, QD
  5. OMEPRAZOLE [Concomitant]
     Dosage: 20 MG, UNK
     Route: 048
  6. PERINDOPRIL ERBUMINE [Concomitant]
     Dosage: 4 MG, UNK
     Route: 048
  7. SIMVASTATIN [Concomitant]
     Dosage: 20 MG, QD
  8. ALENDRONATE SODIUM [Concomitant]
     Dosage: 70 MG, QW
  9. CALCIUM W/VITAMIN D NOS [Concomitant]
     Dosage: 1 DF, QD
  10. ACETAMINOPHEN AND CODEINE PHOSPHATE [Concomitant]
     Indication: ARTHRALGIA
     Dosage: 2 DF, UNK
     Route: 048

REACTIONS (5)
  - OEDEMA MOUTH [None]
  - SWOLLEN TONGUE [None]
  - DYSPNOEA [None]
  - MALAISE [None]
  - LIP SWELLING [None]
